FAERS Safety Report 6452873-9 (Version None)
Quarter: 2009Q4

REPORT INFORMATION
  Report Type: 
  Country: None (occurrence: None)
  Receive Date: 20091117
  Receipt Date: 20091110
  Transmission Date: 20100525
  Serious: Yes (Life-Threatening, Hospitalization, Other)
  Sender: FDA-Public Use
  Company Number: 2009US000072

PATIENT
  Age: 50 Year
  Sex: Male
  Weight: 128 kg

DRUGS (16)
  1. AMBISOME [Suspect]
     Indication: CANDIDIASIS
     Dosage: 300 MG, UID/QD, IV NOS
     Route: 042
     Dates: start: 20081030, end: 20081030
  2. AMBISOME [Suspect]
     Indication: MEDIASTINITIS
     Dosage: 300 MG, UID/QD, IV NOS
     Route: 042
     Dates: start: 20081030, end: 20081030
  3. MORPHINE [Concomitant]
  4. HEPARIN [Concomitant]
  5. ERYTHROMYCIN [Concomitant]
  6. FLUCONAZOLE [Concomitant]
  7. VANCOCINE (VANCOMYCIN HYDROCHLORIDE) [Concomitant]
  8. RIFADINE (RIFAMPICIN SODIUM) [Concomitant]
  9. PERFALGAN (PARACETAMOL) [Concomitant]
  10. MOPRAL (OMEPRAZOLE SODIUM) [Concomitant]
  11. CEFTAZIDIME PENTAHYDRATE [Concomitant]
  12. AMIKIN [Concomitant]
  13. CLAVENTIN (TICARCILLIN DISODIUM) [Concomitant]
  14. BACTRIM [Concomitant]
  15. COLIMYCINE (COLISTIN SULFATE) [Concomitant]
  16. PYOSTACINE (PRISTINAMYCIN) [Concomitant]

REACTIONS (4)
  - ANAPHYLACTIC SHOCK [None]
  - BRONCHOSPASM [None]
  - DIARRHOEA [None]
  - SKIN GRAFT [None]
